FAERS Safety Report 16404043 (Version 1)
Quarter: 2019Q2

REPORT INFORMATION
  Report Type: Spontaneous
  Country: FR (occurrence: FR)
  Receive Date: 20190607
  Receipt Date: 20190607
  Transmission Date: 20190711
  Serious: Yes (Hospitalization, Other)
  Sender: FDA-Public Use
  Company Number: FR-AUROBINDO-AUR-APL-2018-020101

PATIENT

DRUGS (6)
  1. CAPECITABINE. [Suspect]
     Active Substance: CAPECITABINE
     Indication: COLORECTAL CANCER METASTATIC
     Dosage: 2600 MILLIGRAM, LAST ADMINISTRATION ON 29/NOV/2016 DOSE OF 2600 MG (03RD CYCLE) PRIOR TO EVENT.
     Route: 065
     Dates: start: 20161018
  2. IRINOTECAN [Suspect]
     Active Substance: IRINOTECAN
     Indication: COLORECTAL CANCER METASTATIC
     Dosage: 330 MILLIGRAM, LAST ADMINISTRATION ON 20/SEP/2016 DOSE OF 330 MG PRIOR TO EVENT
     Route: 065
     Dates: start: 20160527
  3. OXALIPLATIN. [Suspect]
     Active Substance: OXALIPLATIN
     Indication: COLORECTAL CANCER METASTATIC
     Dosage: 170 MILLIGRAM, LAST ADMINISTRATION ON 20/SEP/2016 DOSE OF 170 MG (9TH CYCLE) PRIOR TO EVENT
     Route: 065
     Dates: start: 20160527
  4. BEVACIZUMAB. [Suspect]
     Active Substance: BEVACIZUMAB
     Indication: COLORECTAL CANCER METASTATIC
     Dosage: 840 MILLIGRAM, LAST ADMINISTRATION ON 29/NOV/2016 DOSE OF 840 MG (11TH CYCLE) PRIOR TO EVENT
     Route: 065
     Dates: start: 20160624
  5. FLUOROURACIL. [Suspect]
     Active Substance: FLUOROURACIL
     Indication: COLORECTAL CANCER METASTATIC
     Dosage: 800 MILLIGRAM
     Route: 040
     Dates: start: 20161004
  6. FLUOROURACIL. [Suspect]
     Active Substance: FLUOROURACIL
     Dosage: 800 MILLIGRAM, LAST ADMINISTRATION ON 04/OCT/2016 DOSE OF 4800 MG (10TH CYCLE) PRIOR TO EVENT
     Route: 040
     Dates: start: 20161004

REACTIONS (3)
  - Hypertension [Recovered/Resolved]
  - Ill-defined disorder [Unknown]
  - Food poisoning [Recovered/Resolved]

NARRATIVE: CASE EVENT DATE: 20161129
